FAERS Safety Report 21768052 (Version 1)
Quarter: 2022Q4

REPORT INFORMATION
  Report Type: Spontaneous
  Country: US (occurrence: US)
  Receive Date: 20221222
  Receipt Date: 20221222
  Transmission Date: 20230112
  Serious: No
  Sender: FDA-Public Use
  Company Number: US-MYLANLABS-2022M1139666

PATIENT
  Sex: Female
  Weight: 75.75 kg

DRUGS (3)
  1. LATANOPROST [Suspect]
     Active Substance: LATANOPROST
     Indication: Glaucoma
     Dosage: 1 GTT DROPS, HS(ONE DROP OF THE PRODUCT IN EACH EYE AT BEDTIME )
     Route: 047
     Dates: start: 20221031
  2. LATANOPROST [Suspect]
     Active Substance: LATANOPROST
     Dosage: UNK
     Route: 065
  3. REFRESH CLASSIC [Concomitant]
     Active Substance: POLYVINYL ALCOHOL\POVIDONE
     Dosage: UNK
     Route: 065

REACTIONS (2)
  - Eye irritation [Recovered/Resolved]
  - Product storage error [Unknown]
